FAERS Safety Report 14900297 (Version 1)
Quarter: 2018Q2

REPORT INFORMATION
  Report Type: Spontaneous
  Country: US (occurrence: US)
  Receive Date: 20180516
  Receipt Date: 20180516
  Transmission Date: 20180711
  Serious: Yes (Hospitalization)
  Sender: FDA-Public Use
  Company Number: US-ELI_LILLY_AND_COMPANY-US201805004911

PATIENT
  Age: 49 Year
  Sex: Female
  Weight: 94.88 kg

DRUGS (10)
  1. EFFEXOR [Suspect]
     Active Substance: VENLAFAXINE HYDROCHLORIDE
     Indication: PRODUCT USED FOR UNKNOWN INDICATION
     Dosage: 75 MG, BID
     Route: 048
  2. IONAMIN [Suspect]
     Active Substance: PHENTERMINE
     Indication: WEIGHT DECREASED
     Dosage: UNK UNK, DAILY
     Route: 048
     Dates: start: 19970307, end: 1997
  3. LASIX [Concomitant]
     Active Substance: FUROSEMIDE
     Dosage: 20 MG, DAILY
     Route: 048
  4. REDUX [Suspect]
     Active Substance: DEXFENFLURAMINE HYDROCHLORIDE
     Indication: OBESITY
     Dosage: 30 MG, DAILY
     Route: 048
     Dates: start: 19960716, end: 19961106
  5. ZOLOFT [Suspect]
     Active Substance: SERTRALINE HYDROCHLORIDE
     Indication: DEPRESSION
     Dosage: UNK UNK, DAILY
     Route: 048
  6. ZESTRIL [Concomitant]
     Active Substance: LISINOPRIL
     Dosage: 40 MG, DAILY
     Route: 048
  7. PROZAC [Suspect]
     Active Substance: FLUOXETINE HYDROCHLORIDE
     Indication: DEPRESSION
     Dosage: UNK UNK, DAILY
     Route: 048
  8. POTASSIUM [Concomitant]
     Active Substance: POTASSIUM
     Dosage: UNK UNK, DAILY
     Route: 065
  9. PONDIMIN [Suspect]
     Active Substance: FENFLURAMINE HYDROCHLORIDE
     Indication: WEIGHT DECREASED
     Dosage: UNK UNK, DAILY
     Route: 048
     Dates: start: 19970307, end: 1997
  10. PRILOSEC [Concomitant]
     Active Substance: OMEPRAZOLE MAGNESIUM
     Dosage: 20 MG, DAILY
     Route: 048

REACTIONS (2)
  - Cardiac valve disease [Unknown]
  - Cardiac failure [Unknown]

NARRATIVE: CASE EVENT DATE: 19961106
